FAERS Safety Report 4462251-X (Version None)
Quarter: 2004Q3

REPORT INFORMATION
  Report Type: 
  Country: None (occurrence: None)
  Receive Date: 20040929
  Receipt Date: 20040924
  Transmission Date: 20050211
  Serious: Yes (Hospitalization)
  Sender: FDA-Public Use
  Company Number: US-GLAXOSMITHKLINE-A0527361A

PATIENT
  Sex: Male

DRUGS (2)
  1. EPIVIR [Suspect]
     Indication: HEPATITIS B SURFACE ANTIGEN
     Dosage: 150MG TWICE PER DAY
     Route: 048
  2. PREDNISONE [Concomitant]
     Indication: VASCULITIS
     Dosage: 60MG PER DAY

REACTIONS (1)
  - CARDIAC FAILURE CONGESTIVE [None]
